FAERS Safety Report 8515955-3 (Version None)
Quarter: 2012Q3

REPORT INFORMATION
  Report Type: 
  Country: None (occurrence: None)
  Receive Date: 20120705
  Receipt Date: 20120620
  Transmission Date: 20120928
  Serious: Yes (Congenital Anomaly)
  Sender: FDA-Public Use
  Company Number: DSA_58184_2012

PATIENT
  Sex: Female

DRUGS (1)
  1. ENALAPRIL MALEATE [Suspect]
     Indication: ESSENTIAL HYPERTENSION
     Dosage: (10 MG QD TRANSPLACENTAL)
     Route: 064
     Dates: start: 19870701, end: 19880428

REACTIONS (3)
  - PREMATURE BABY [None]
  - URINARY TRACT MALFORMATION [None]
  - MATERNAL DRUGS AFFECTING FOETUS [None]
